FAERS Safety Report 4590912-0 (Version None)
Quarter: 2005Q1

REPORT INFORMATION
  Report Type: 
  Country: None (occurrence: None)
  Receive Date: 20050225
  Receipt Date: 20050214
  Transmission Date: 20050727
  Serious: Yes (Hospitalization)
  Sender: FDA-Public Use
  Company Number: US-JNJFOC-20041105259

PATIENT
  Sex: Female

DRUGS (24)
  1. REMICADE [Suspect]
     Route: 042
  2. REMICADE [Suspect]
     Indication: RHEUMATOID ARTHRITIS
     Route: 042
  3. NEURONTIN [Concomitant]
  4. NEURONTIN [Concomitant]
  5. SONATA [Concomitant]
     Indication: SLEEP DISORDER THERAPY
  6. MEDROL [Concomitant]
  7. MEDROL [Concomitant]
  8. PREMARIN [Concomitant]
  9. VITAMIN E [Concomitant]
  10. VITAMIN A [Concomitant]
  11. VITAMIN C [Concomitant]
  12. CALCIUM GLUCONATE [Concomitant]
  13. TYLENOL (CAPLET) [Concomitant]
  14. FOLIC ACID [Concomitant]
  15. ASPIRIN [Concomitant]
  16. NORVASC [Concomitant]
  17. ZOLOFT [Concomitant]
  18. FLEXERIL [Concomitant]
  19. DOXYCYCLINE [Concomitant]
  20. ARAVA [Concomitant]
  21. VITAMIN B-12 [Concomitant]
  22. VITAMIN B6 [Concomitant]
  23. MAGNESIUM [Concomitant]
  24. PROTONIX [Concomitant]

REACTIONS (3)
  - PNEUMONIA [None]
  - PULMONARY COCCIDIOIDES [None]
  - RESPIRATORY FAILURE [None]
